FAERS Safety Report 7765925-8 (Version None)
Quarter: 2011Q3

REPORT INFORMATION
  Report Type: 
  Country: None (occurrence: None)
  Receive Date: 20110921
  Receipt Date: 20110907
  Transmission Date: 20111222
  Serious: Yes (Hospitalization)
  Sender: FDA-Public Use
  Company Number: US-JNJFOC-20110810470

PATIENT
  Sex: Female
  Weight: 57.61 kg

DRUGS (8)
  1. PROTONIX [Concomitant]
     Indication: GASTROOESOPHAGEAL REFLUX DISEASE
     Route: 048
  2. FOSAMAX [Concomitant]
     Indication: OSTEOARTHRITIS
     Route: 048
     Dates: start: 20070701
  3. IMITREX [Concomitant]
     Indication: MIGRAINE
     Route: 048
     Dates: start: 20060101
  4. REMICADE [Suspect]
     Indication: RHEUMATOID ARTHRITIS
     Route: 042
     Dates: start: 20071206
  5. FOLIC ACID [Concomitant]
     Indication: VITAMIN SUPPLEMENTATION
     Route: 048
  6. METHOTREXATE [Concomitant]
     Indication: RHEUMATOID ARTHRITIS
     Route: 058
  7. CITRACAL [Concomitant]
     Indication: VITAMIN SUPPLEMENTATION
     Route: 048
  8. VITAMIN D [Concomitant]
     Indication: VITAMIN SUPPLEMENTATION
     Route: 048

REACTIONS (4)
  - ARTHROPATHY [None]
  - INTRAOCULAR PRESSURE FLUCTUATION [None]
  - TEMPOROMANDIBULAR JOINT SYNDROME [None]
  - HEADACHE [None]
